FAERS Safety Report 5573846-4 (Version None)
Quarter: 2007Q4

REPORT INFORMATION
  Report Type: 
  Country: None (occurrence: None)
  Receive Date: 20071226
  Receipt Date: 20071214
  Transmission Date: 20080405
  Serious: Yes (Death, Other)
  Sender: FDA-Public Use
  Company Number: DE-PFIZER INC-2007101664

PATIENT
  Age: 27 Year
  Sex: Male

DRUGS (1)
  1. ZELDOX (CAPSULES) [Suspect]
     Indication: SCHIZOAFFECTIVE DISORDER
     Route: 048
     Dates: start: 20030101, end: 20071101

REACTIONS (10)
  - ALCOHOL ABUSE [None]
  - FAECES DISCOLOURED [None]
  - FOOD CRAVING [None]
  - GAMMA-GLUTAMYLTRANSFERASE INCREASED [None]
  - GLUCOSE TOLERANCE DECREASED [None]
  - HEPATIC ENZYME INCREASED [None]
  - MALAISE [None]
  - MANIA [None]
  - SUDDEN CARDIAC DEATH [None]
  - WEIGHT INCREASED [None]
